FAERS Safety Report 10994740 (Version 2)
Quarter: 2015Q2

REPORT INFORMATION
  Report Type: Spontaneous
  Country: US (occurrence: US)
  Receive Date: 20150407
  Receipt Date: 20150602
  Transmission Date: 20150821
  Serious: Yes (Death, Hospitalization, Other)
  Sender: FDA-Public Use
  Company Number: US-009507513-1504USA002776

PATIENT
  Sex: Female
  Weight: 74.38 kg

DRUGS (2)
  1. JANUVIA [Suspect]
     Active Substance: SITAGLIPTIN PHOSPHATE
     Indication: TYPE 2 DIABETES MELLITUS
     Dosage: 100 MG, QD
     Route: 048
     Dates: start: 20100615, end: 20130125
  2. CREON (PANCRELIPASE) [Concomitant]
     Indication: GASTROOESOPHAGEAL REFLUX DISEASE
     Dosage: 150 MG, UNK
     Dates: start: 2000, end: 201405

REACTIONS (8)
  - Emotional disorder [Unknown]
  - Pancreatic carcinoma [Unknown]
  - Vision blurred [Unknown]
  - Pancreatitis [Unknown]
  - Renal disorder [Unknown]
  - Death [Fatal]
  - Psychological trauma [Unknown]
  - Nephropathy [Unknown]

NARRATIVE: CASE EVENT DATE: 20140331
